FAERS Safety Report 5967961-0 (Version None)
Quarter: 2008Q4

REPORT INFORMATION
  Report Type: 
  Country: None (occurrence: None)
  Receive Date: 20081120
  Receipt Date: 20081113
  Transmission Date: 20090506
  Serious: Yes (Hospitalization, Other)
  Sender: FDA-Public Use
  Company Number: TCI2008A04894

PATIENT
  Age: 51 Year
  Sex: Female

DRUGS (7)
  1. ACTOS [Suspect]
     Indication: DIABETES MELLITUS
     Dosage: 15 MG (15 MG, 1 IN 1 D) PER ORAL
     Route: 048
     Dates: start: 20080908, end: 20080910
  2. AMLODIPINE BESYLATE [Concomitant]
  3. MUCODYNE(CARBOCISTEINE) [Concomitant]
  4. BISOLVON (BROMHEXINE HYDROCHLORIDE) [Concomitant]
  5. LEVOFLOXACIN [Concomitant]
  6. O-SUGI KAMISHOUYOUSAN( HERBAL EXTRACT NOS) [Concomitant]
  7. MEDICON (DEXTROMETHORPHAN HYDROBROMIDE) [Concomitant]

REACTIONS (9)
  - BACTERIAL INFECTION [None]
  - BLOOD PRESSURE INCREASED [None]
  - CHEST X-RAY ABNORMAL [None]
  - COMPUTERISED TOMOGRAM THORAX ABNORMAL [None]
  - DIASTOLIC DYSFUNCTION [None]
  - INTERSTITIAL LUNG DISEASE [None]
  - MENOPAUSAL SYMPTOMS [None]
  - SINUS TACHYCARDIA [None]
  - SPUTUM CULTURE POSITIVE [None]
